FAERS Safety Report 5289273-3 (Version None)
Quarter: 2007Q2

REPORT INFORMATION
  Report Type: 
  Country: None (occurrence: None)
  Receive Date: 20070404
  Receipt Date: 20070404
  Transmission Date: 20071010
  Serious: No
  Sender: FDA-Public Use
  Company Number: None

PATIENT
  Sex: Male
  Weight: 74.7 kg

DRUGS (7)
  1. WINRHO [Suspect]
     Indication: IDIOPATHIC THROMBOCYTOPENIC PURPURA
     Dosage: 5600MCG  IV X 1
     Route: 042
     Dates: start: 20070323
  2. SINGULAIR [Concomitant]
  3. ZINC [Concomitant]
  4. ALBUTEROL [Concomitant]
  5. GRAPE SEED [Concomitant]
  6. MULTI-VITAMIN [Concomitant]
  7. CLARITIN [Concomitant]

REACTIONS (5)
  - CHILLS [None]
  - DYSPNOEA [None]
  - FLANK PAIN [None]
  - NASAL CONGESTION [None]
  - OXYGEN SATURATION DECREASED [None]
